FAERS Safety Report 17848303 (Version 1)
Quarter: 2020Q2

REPORT INFORMATION
  Report Type: Spontaneous
  Country: IT (occurrence: IT)
  Receive Date: 20200602
  Receipt Date: 20200602
  Transmission Date: 20200714
  Serious: Yes (Death, Hospitalization, Other)
  Sender: FDA-Public Use
  Company Number: IT-CELLTRION INC.-2020IT022723

PATIENT

DRUGS (6)
  1. CYCLOPHOSPHAMIDE. [Suspect]
     Active Substance: CYCLOPHOSPHAMIDE
     Indication: SPLENIC MARGINAL ZONE LYMPHOMA
     Dosage: UNK
  2. DOXORUBICIN [Suspect]
     Active Substance: DOXORUBICIN
     Indication: SPLENIC MARGINAL ZONE LYMPHOMA
     Dosage: UNK
  3. RITUXIMAB (UNKNOWN) [Suspect]
     Active Substance: RITUXIMAB
     Indication: SPLENIC MARGINAL ZONE LYMPHOMA
     Dosage: UNK
  4. VINCRISTINE [Suspect]
     Active Substance: VINCRISTINE
     Indication: SPLENIC MARGINAL ZONE LYMPHOMA
     Dosage: UNK
  5. PREDNISONE. [Suspect]
     Active Substance: PREDNISONE
     Indication: SPLENIC MARGINAL ZONE LYMPHOMA
     Dosage: UNK
  6. FILGRASTIM [Concomitant]
     Active Substance: FILGRASTIM
     Indication: SPLENIC MARGINAL ZONE LYMPHOMA
     Dosage: UNK

REACTIONS (6)
  - Febrile neutropenia [Fatal]
  - Product use in unapproved indication [Unknown]
  - Viral vasculitis [Fatal]
  - Herpes virus infection [Fatal]
  - Lymphopenia [Fatal]
  - Herpes simplex encephalitis [Fatal]
